FAERS Safety Report 25386243 (Version 1)
Quarter: 2025Q2

REPORT INFORMATION
  Report Type: Spontaneous
  Country: US (occurrence: None)
  Receive Date: 20250530
  Receipt Date: 20250530
  Transmission Date: 20250716
  Serious: Yes (Other)
  Sender: FDA-CTU
  Company Number: None

PATIENT
  Age: 38 Year
  Sex: Female
  Weight: 56.25 kg

DRUGS (2)
  1. CHILDRENS XYZAL ALLERGY 24HR [Suspect]
     Active Substance: LEVOCETIRIZINE DIHYDROCHLORIDE
     Indication: Seasonal allergy
     Dosage: OTHER QUANTITY : 5 ML;?FREQUENCY : AT BEDTIME;?
     Route: 048
     Dates: start: 20250529, end: 20250530
  2. womens multi vitamin [Concomitant]

REACTIONS (3)
  - Fatigue [None]
  - Loss of personal independence in daily activities [None]
  - Fatigue [None]

NARRATIVE: CASE EVENT DATE: 20250529
